FAERS Safety Report 13856279 (Version 2)
Quarter: 2017Q3

REPORT INFORMATION
  Report Type: Report from Study
  Country: US (occurrence: US)
  Receive Date: 20170810
  Receipt Date: 20170824
  Transmission Date: 20171127
  Serious: Yes (Death)
  Sender: FDA-Public Use
  Company Number: US-ACTELION-A-NJ2017-157796

PATIENT
  Age: 54 Year
  Sex: Male

DRUGS (3)
  1. SILDENAFIL. [Concomitant]
     Active Substance: SILDENAFIL
     Dosage: 60 MG, TID
     Dates: start: 20160216
  2. UPTRAVI [Suspect]
     Active Substance: SELEXIPAG
     Indication: PULMONARY ARTERIAL HYPERTENSION
     Dosage: 1600 MCG, BID
     Route: 048
     Dates: start: 20170111, end: 20170803
  3. AMBRISENTAN [Concomitant]
     Active Substance: AMBRISENTAN
     Dosage: 10 MG, QD
     Dates: start: 20160216

REACTIONS (3)
  - Colorectal cancer metastatic [Fatal]
  - Intestinal perforation [Fatal]
  - Septic shock [Fatal]
